FAERS Safety Report 25648749 (Version 2)
Quarter: 2025Q4

REPORT INFORMATION
  Report Type: Report from Study
  Country: US (occurrence: US)
  Receive Date: 20250806
  Receipt Date: 20251013
  Transmission Date: 20260117
  Serious: Yes (Other)
  Sender: SUNOVION
  Company Number: US-SUMITOMO PHARMA SWITZERLAND GMBH-2024MYSCI0700443

PATIENT
  Age: 66 Year
  Sex: Male

DRUGS (10)
  1. ORGOVYX [Suspect]
     Active Substance: RELUGOLIX
     Indication: Prostate cancer
     Dosage: 360 MILLIGRAM, ONE TIME DOSE
     Route: 048
     Dates: start: 20240620, end: 20240620
  2. ORGOVYX [Suspect]
     Active Substance: RELUGOLIX
     Dosage: 120 MILLIGRAM, QD
     Route: 048
     Dates: start: 20240621
  3. ATORVASTATIN [Concomitant]
     Active Substance: ATORVASTATIN
  4. CANNABIS SATIVA SUBSP. INDICA TOP [Concomitant]
     Active Substance: CANNABIS SATIVA SUBSP. INDICA TOP
     Dosage: GUMMIES
  5. ELIQUIS [Concomitant]
     Active Substance: APIXABAN
  6. ASPIRIN [Concomitant]
     Active Substance: ASPIRIN
  7. TAMSULOSIN [Concomitant]
     Active Substance: TAMSULOSIN
  8. AMOXICILLIN [Concomitant]
     Active Substance: AMOXICILLIN
  9. GUAIFENESIN AND PHENYLEPHRINE HYDROCHLORIDE [Concomitant]
     Active Substance: GUAIFENESIN\PHENYLEPHRINE HYDROCHLORIDE
  10. OZEMPIC [Concomitant]
     Active Substance: SEMAGLUTIDE

REACTIONS (13)
  - Knee arthroplasty [Unknown]
  - Anger [Unknown]
  - Feeling abnormal [Unknown]
  - COVID-19 [Unknown]
  - Amnesia [Unknown]
  - Nasopharyngitis [Unknown]
  - Muscle atrophy [Unknown]
  - Affective disorder [Unknown]
  - Irritability [Unknown]
  - Fatigue [Unknown]
  - Hot flush [Unknown]
  - Weight increased [Unknown]
  - Arthralgia [Unknown]
